FAERS Safety Report 6465962-X (Version None)
Quarter: 2009Q4

REPORT INFORMATION
  Report Type: 
  Country: None (occurrence: None)
  Receive Date: 20091202
  Receipt Date: 20091119
  Transmission Date: 20100525
  Serious: Yes (Death, Hospitalization, Other)
  Sender: FDA-Public Use
  Company Number: AU-RANBAXY-2009US-27241

PATIENT

DRUGS (2)
  1. PARACETAMOL PENTRU COPII 120MG/5ML SIROP [Suspect]
     Indication: UPPER RESPIRATORY TRACT INFECTION
     Dosage: 5 ML, EVERY 4 HRS. FOR A TOTAL OF 3 DOSES
     Route: 048
  2. PARACETAMOL PENTRU COPII 120MG/5ML SIROP [Suspect]
     Indication: BODY TEMPERATURE INCREASED
     Dosage: 30 ML (720MG), EVERY 3 HRS.
     Route: 048

REACTIONS (4)
  - ABDOMINAL PAIN [None]
  - DRUG TOXICITY [None]
  - LIVER INJURY [None]
  - OVERDOSE [None]
